FAERS Safety Report 10207453 (Version 1)
Quarter: 2014Q2

REPORT INFORMATION
  Report Type: Spontaneous
  Country: US (occurrence: US)
  Receive Date: 20140530
  Receipt Date: 20140530
  Transmission Date: 20141212
  Serious: No
  Sender: FDA-Public Use
  Company Number: US-BRISTOL-MYERS SQUIBB COMPANY-19828912

PATIENT
  Sex: 0

DRUGS (1)
  1. SUSTIVA [Suspect]
     Dosage: 1 CAP IN THE MRNG,1 AT NT

REACTIONS (1)
  - Inappropriate schedule of drug administration [Unknown]
